FAERS Safety Report 25907422 (Version 3)
Quarter: 2025Q4

REPORT INFORMATION
  Report Type: Spontaneous
  Country: US (occurrence: US)
  Receive Date: 20251010
  Receipt Date: 20251120
  Transmission Date: 20260118
  Serious: Yes (Other)
  Sender: NOVO NORDISK
  Company Number: US-NOVOPROD-1534316

PATIENT
  Age: 64 Year
  Sex: Female
  Weight: 70 kg

DRUGS (2)
  1. NOVOLOG [Suspect]
     Active Substance: INSULIN ASPART
     Indication: Type 1 diabetes mellitus
     Dosage: UNK
  2. NOVOLOG [Suspect]
     Active Substance: INSULIN ASPART
     Indication: Diabetes mellitus management
     Dosage: USE IN INSULIN PUMP MAXIMUM DAILY DOSE OF 100 UNITS
     Route: 058
     Dates: start: 1999

REACTIONS (11)
  - Injury [Recovering/Resolving]
  - Foot fracture [Recovering/Resolving]
  - Glycosylated haemoglobin increased [Unknown]
  - Scar [Recovering/Resolving]
  - Blood glucose decreased [Recovering/Resolving]
  - Blood glucose increased [Recovered/Resolved]
  - Skin lesion [Recovering/Resolving]
  - Soft tissue injury [Recovering/Resolving]
  - Malaise [Recovering/Resolving]
  - Arthropod bite [Recovering/Resolving]
  - Product contamination [Unknown]

NARRATIVE: CASE EVENT DATE: 20250701
